FAERS Safety Report 6277452-8 (Version None)
Quarter: 2009Q3

REPORT INFORMATION
  Report Type: 
  Country: None (occurrence: None)
  Receive Date: 20090722
  Receipt Date: 20090710
  Transmission Date: 20100115
  Serious: Yes (Hospitalization)
  Sender: FDA-Public Use
  Company Number: JP-PFIZER INC-2009241238

PATIENT

DRUGS (2)
  1. AMLODIPINE [Suspect]
     Indication: HYPERTENSION
  2. AVAPRO [Suspect]

REACTIONS (1)
  - CEREBRAL INFARCTION [None]
